FAERS Safety Report 6379627-6 (Version None)
Quarter: 2009Q3

REPORT INFORMATION
  Report Type: 
  Country: None (occurrence: None)
  Receive Date: 20090924
  Receipt Date: 20090924
  Transmission Date: 20100115
  Serious: Yes (Hospitalization)
  Sender: FDA-Public Use
  Company Number: None

PATIENT
  Sex: Female
  Weight: 117.9 kg

DRUGS (1)
  1. CYTARABINE [Suspect]
     Dosage: 122880 MG
     Dates: end: 20090418

REACTIONS (6)
  - ENTEROCOCCAL INFECTION [None]
  - FEBRILE NEUTROPENIA [None]
  - HYPOTENSION [None]
  - SEPSIS [None]
  - SKIN LESION [None]
  - TACHYCARDIA [None]
